FAERS Safety Report 4557641-0 (Version None)
Quarter: 2005Q1

REPORT INFORMATION
  Report Type: 
  Country: None (occurrence: None)
  Receive Date: 20050103
  Receipt Date: 20040812
  Transmission Date: 20050727
  Serious: Yes (Other)
  Sender: FDA-Public Use
  Company Number: 2004UW17186

PATIENT
  Age: 78 Year
  Sex: Female
  Weight: 73.4827 kg

DRUGS (5)
  1. CRESTOR [Suspect]
     Indication: HYPERCHOLESTEROLAEMIA
     Dosage: 10 MG QD PO
     Route: 048
     Dates: end: 20040401
  2. LASIX [Concomitant]
  3. NORVASC [Concomitant]
  4. CAPTOPRIL [Concomitant]
  5. DIGITEK [Concomitant]

REACTIONS (2)
  - ALOPECIA [None]
  - MYALGIA [None]
